FAERS Safety Report 17762942 (Version 2)
Quarter: 2020Q2

REPORT INFORMATION
  Report Type: Report from Study
  Country: US (occurrence: US)
  Receive Date: 20200508
  Receipt Date: 20200603
  Transmission Date: 20200714
  Serious: Yes (Hospitalization)
  Sender: FDA-Public Use
  Company Number: US-ACTELION-A-NJ2020-200598

PATIENT
  Age: 65 Year
  Sex: Male
  Weight: 133.33 kg

DRUGS (6)
  1. OPSUMIT [Suspect]
     Active Substance: MACITENTAN
     Indication: PULMONARY ARTERIAL HYPERTENSION
     Dosage: 10 MG, QD
     Route: 048
  2. UPTRAVI [Suspect]
     Active Substance: SELEXIPAG
     Indication: PULMONARY ARTERIAL HYPERTENSION
     Dosage: 1600 MCG, BID
     Route: 048
  3. UPTRAVI [Suspect]
     Active Substance: SELEXIPAG
     Dosage: 1000 MCG, BID
     Route: 048
  4. UPTRAVI [Suspect]
     Active Substance: SELEXIPAG
     Dosage: UNK
     Route: 048
  5. ADEMPAS [Concomitant]
     Active Substance: RIOCIGUAT
     Dosage: 1 MG
     Dates: start: 202001, end: 20200117
  6. UPTRAVI [Suspect]
     Active Substance: SELEXIPAG
     Dosage: 600 MCG
     Route: 048

REACTIONS (30)
  - Dyspnoea exertional [Recovering/Resolving]
  - Decreased appetite [Unknown]
  - Exercise tolerance decreased [Recovering/Resolving]
  - Palpitations [Unknown]
  - Fluid retention [Unknown]
  - Oedema peripheral [Unknown]
  - Hypotension [Unknown]
  - Weight increased [Unknown]
  - Neuropathy peripheral [Unknown]
  - Hip fracture [Unknown]
  - Burning sensation [Unknown]
  - Limb discomfort [Not Recovered/Not Resolved]
  - Fatigue [Unknown]
  - Skin laceration [Unknown]
  - Pain in extremity [Unknown]
  - Localised oedema [Not Recovered/Not Resolved]
  - Visual impairment [Unknown]
  - Photophobia [Unknown]
  - Pain [Unknown]
  - Adverse drug reaction [Unknown]
  - Oxygen saturation decreased [Not Recovered/Not Resolved]
  - Pain in jaw [Not Recovered/Not Resolved]
  - Chest pain [Unknown]
  - Productive cough [Unknown]
  - Chills [Unknown]
  - Abdominal distension [Unknown]
  - Malaise [Unknown]
  - Fall [Unknown]
  - Cough [Unknown]
  - Tachycardia [Not Recovered/Not Resolved]

NARRATIVE: CASE EVENT DATE: 202001
